FAERS Safety Report 9538159 (Version 2)
Quarter: 2015Q2

REPORT INFORMATION
  Report Type: Spontaneous
  Country: US (occurrence: US)
  Receive Date: 20130920
  Receipt Date: 20150525
  Transmission Date: 20150821
  Serious: No
  Sender: FDA-Public Use
  Company Number: US-BIOGENIDEC-2013BI088222

PATIENT
  Age: 42 Year
  Sex: Female

DRUGS (1)
  1. TYSABRI [Suspect]
     Active Substance: NATALIZUMAB
     Indication: MULTIPLE SCLEROSIS
     Route: 042
     Dates: start: 20120214

REACTIONS (13)
  - Influenza like illness [Recovered/Resolved]
  - Multiple sclerosis relapse [Unknown]
  - Diarrhoea [Not Recovered/Not Resolved]
  - Abdominal pain upper [Not Recovered/Not Resolved]
  - Nephrolithiasis [Recovered/Resolved]
  - Kidney infection [Recovered/Resolved]
  - Muscle spasms [Not Recovered/Not Resolved]
  - Bladder disorder [Unknown]
  - Musculoskeletal stiffness [Not Recovered/Not Resolved]
  - Hot flush [Recovered/Resolved]
  - Fatigue [Not Recovered/Not Resolved]
  - Sinus disorder [Not Recovered/Not Resolved]
  - General symptom [Recovered/Resolved]

NARRATIVE: CASE EVENT DATE: 20120214
